FAERS Safety Report 4913043-6 (Version None)
Quarter: 2006Q1

REPORT INFORMATION
  Report Type: 
  Country: None (occurrence: None)
  Receive Date: 20060210
  Receipt Date: 20060129
  Transmission Date: 20060701
  Serious: Yes (Hospitalization)
  Sender: FDA-Public Use
  Company Number: 2006PV007797

PATIENT
  Age: 59 Year
  Sex: Male
  Weight: 113.3993 kg

DRUGS (5)
  1. BYETTA [Suspect]
     Indication: DIABETES MELLITUS NON-INSULIN-DEPENDENT
     Dosage: 10 MCG; BID; SC; SEE IMAGE
     Route: 058
     Dates: start: 20060101
  2. METFORMIN XL [Concomitant]
  3. ALPHA LIPOIC ACID [Concomitant]
  4. AMOXICILLIN [Concomitant]
  5. ANTIBIOTIC NOT SPECIFIED [Concomitant]

REACTIONS (10)
  - BONE GRAFT [None]
  - CHILLS [None]
  - DIPLOPIA [None]
  - EYE DISORDER [None]
  - HYPOGLYCAEMIA [None]
  - NAUSEA [None]
  - SINUSITIS [None]
  - TOOTH ABSCESS [None]
  - VITH NERVE PARALYSIS [None]
  - WEIGHT DECREASED [None]
